FAERS Safety Report 19311041 (Version 2)
Quarter: 2021Q2

REPORT INFORMATION
  Report Type: Spontaneous
  Country: DE (occurrence: DE)
  Receive Date: 20210526
  Receipt Date: 20210601
  Transmission Date: 20210717
  Serious: Yes (Hospitalization, Other)
  Sender: FDA-Public Use
  Company Number: DE-CELLTRION INC.-2021DE006907

PATIENT

DRUGS (11)
  1. TOPIRAMATE. [Concomitant]
     Active Substance: TOPIRAMATE
  2. CYCLOPHOSPHAMIDE. [Suspect]
     Active Substance: CYCLOPHOSPHAMIDE
     Indication: ENCEPHALITIS AUTOIMMUNE
     Route: 065
  3. LEVETIRACETAM. [Concomitant]
     Active Substance: LEVETIRACETAM
  4. RITUXIMAB (UNKNOWN) [Suspect]
     Active Substance: RITUXIMAB
     Indication: ENCEPHALITIS AUTOIMMUNE
     Dosage: 1000 MG WAS CONTINUED EVERY 6 MONTHS AFTER DISEASE ONSET
     Route: 065
  5. DARATUMUMAB [Concomitant]
     Active Substance: DARATUMUMAB
  6. ACYCLOVIR [ACICLOVIR] [Concomitant]
     Active Substance: ACYCLOVIR
  7. BORTEZOMIB. [Suspect]
     Active Substance: BORTEZOMIB
     Indication: ENCEPHALITIS AUTOIMMUNE
     Dosage: 1.3 MG/M2, BORTEZOMIB ADMINISTRATION WAS 16 WEEKS AFTER HOSPITAL ADMISSION, WHEREBY THREE CYCLES OF
     Route: 065
  8. PREDNISOLONE. [Suspect]
     Active Substance: PREDNISOLONE
     Indication: ENCEPHALITIS AUTOIMMUNE
     Route: 065
  9. LACOSAMIDE. [Concomitant]
     Active Substance: LACOSAMIDE
  10. PREDNISOLONE. [Concomitant]
     Active Substance: PREDNISOLONE
  11. PARACETAMOL [Concomitant]
     Active Substance: ACETAMINOPHEN

REACTIONS (7)
  - Pneumonia cytomegaloviral [Unknown]
  - Cytomegalovirus infection [Unknown]
  - Off label use [Unknown]
  - Septic shock [Unknown]
  - Urinary tract infection [Unknown]
  - Pneumonia [Unknown]
  - Drug ineffective [Unknown]
